FAERS Safety Report 18900635 (Version 1)
Quarter: 2021Q1

REPORT INFORMATION
  Report Type: Report from Study
  Country: CA (occurrence: CA)
  Receive Date: 20210216
  Receipt Date: 20210216
  Transmission Date: 20210420
  Serious: Yes (Other)
  Sender: FDA-Public Use
  Company Number: CA-B.I. PHARMACEUTICALS,INC./RIDGEFIELD-2020-BI-001936

PATIENT
  Age: 63 Year
  Sex: Male

DRUGS (2)
  1. OFEV [Suspect]
     Active Substance: NINTEDANIB
     Indication: IDIOPATHIC PULMONARY FIBROSIS
     Dosage: 200 MG
     Route: 048
     Dates: start: 20190913, end: 2020
  2. OFEV [Suspect]
     Active Substance: NINTEDANIB
     Dosage: 200MG
     Route: 048

REACTIONS (11)
  - Diarrhoea [Recovered/Resolved]
  - Gastrointestinal sounds abnormal [Not Recovered/Not Resolved]
  - Blood cholesterol increased [Unknown]
  - Helicobacter infection [Not Recovered/Not Resolved]
  - Illness [Not Recovered/Not Resolved]
  - Flatulence [Not Recovered/Not Resolved]
  - Pancreatitis [Not Recovered/Not Resolved]
  - Pancreatitis [Recovered/Resolved]
  - Nausea [Not Recovered/Not Resolved]
  - Abdominal pain [Recovered/Resolved]
  - Vomiting [Not Recovered/Not Resolved]

NARRATIVE: CASE EVENT DATE: 20200802
